FAERS Safety Report 19866681 (Version 1)
Quarter: 2021Q3

REPORT INFORMATION
  Report Type: Report from Study
  Country: None (occurrence: US)
  Receive Date: 20210922
  Receipt Date: 20210922
  Transmission Date: 20211014
  Serious: Yes (Hospitalization)
  Sender: FDA-Public Use
  Company Number: US-ABBVIE-21K-163-4087183-00

PATIENT
  Age: 79 Year
  Sex: Male

DRUGS (5)
  1. COVID?19 VACCINE NOS. [Suspect]
     Active Substance: COVID-19 VACCINE NOS
     Route: 030
     Dates: start: 20210917, end: 20210917
  2. COVID?19 VACCINE NOS. [Suspect]
     Active Substance: COVID-19 VACCINE NOS
     Indication: COVID-19 IMMUNISATION
     Route: 030
  3. COVID?19 VACCINE NOS. [Suspect]
     Active Substance: COVID-19 VACCINE NOS
     Route: 030
  4. VENCLEXTA [Suspect]
     Active Substance: VENETOCLAX
     Dosage: DOSE DECREASED
     Route: 048
  5. VENCLEXTA [Suspect]
     Active Substance: VENETOCLAX
     Indication: ACUTE MYELOID LEUKAEMIA
     Dosage: DAILY FOR FOUR WEEKS ON AND THEN TWO WEEKS OFF
     Route: 048
     Dates: start: 202106, end: 2021

REACTIONS (8)
  - Back disorder [Unknown]
  - Malaise [Unknown]
  - White blood cell disorder [Unknown]
  - Anaemia [Unknown]
  - Skin disorder [Recovering/Resolving]
  - Pneumonia [Unknown]
  - Chills [Unknown]
  - Pyrexia [Unknown]

NARRATIVE: CASE EVENT DATE: 2021
